FAERS Safety Report 6367471-5 (Version None)
Quarter: 2009Q3

REPORT INFORMATION
  Report Type: 
  Country: None (occurrence: None)
  Receive Date: 20090921
  Receipt Date: 20090916
  Transmission Date: 20100115
  Serious: Yes (Death, Hospitalization)
  Sender: FDA-Public Use
  Company Number: B0593986A

PATIENT
  Age: 24 Year
  Sex: Female

DRUGS (1)
  1. RELENZA [Suspect]
     Indication: INFLUENZA
     Dosage: 10MG TWICE PER DAY
     Route: 055
     Dates: start: 20090826

REACTIONS (9)
  - ABNORMAL CLOTTING FACTOR [None]
  - ACUTE RESPIRATORY DISTRESS SYNDROME [None]
  - DEATH [None]
  - DYSPNOEA [None]
  - HAEMORRHAGE [None]
  - LEUKOPENIA [None]
  - PNEUMONIA VIRAL [None]
  - SUBARACHNOID HAEMORRHAGE [None]
  - WHITE BLOOD CELL COUNT DECREASED [None]
